FAERS Safety Report 7120758-0 (Version None)
Quarter: 2010Q4

REPORT INFORMATION
  Report Type: 
  Country: None (occurrence: None)
  Receive Date: 20101124
  Receipt Date: 20101119
  Transmission Date: 20110411
  Serious: Yes (Hospitalization)
  Sender: FDA-Public Use
  Company Number: US-BAYER-201041627NA

PATIENT
  Age: 37 Year
  Sex: Male

DRUGS (2)
  1. LEUKINE [Suspect]
     Indication: COLONY STIMULATING FACTOR PROPHYLAXIS
     Route: 058
     Dates: start: 20101105
  2. ALLOPURINOL [Concomitant]

REACTIONS (5)
  - BLOOD PRESSURE DIASTOLIC DECREASED [None]
  - DYSKINESIA [None]
  - DYSPNOEA [None]
  - HYPERHIDROSIS [None]
  - UNRESPONSIVE TO STIMULI [None]
